FAERS Safety Report 5653644-3 (Version None)
Quarter: 2008Q1

REPORT INFORMATION
  Report Type: 
  Country: None (occurrence: None)
  Receive Date: 20080306
  Receipt Date: 20080228
  Transmission Date: 20080703
  Serious: Yes (Hospitalization)
  Sender: FDA-Public Use
  Company Number: FR-ELI_LILLY_AND_COMPANY-FR200802006763

PATIENT
  Age: 78 Year
  Sex: Female

DRUGS (5)
  1. FORTEO [Suspect]
     Indication: OSTEOPOROSIS
     Dosage: 20 UG, DAILY (1/D)
     Route: 058
     Dates: start: 20061121, end: 20080202
  2. COVERSYL /FRA/ [Concomitant]
     Indication: HYPERTENSION
  3. CORTANCYL [Concomitant]
     Indication: RHEUMATOID ARTHRITIS
     Dosage: 6 MG, DAILY (1/D)
  4. IXPRIM [Concomitant]
     Indication: PAIN
  5. ACETAMINOPHEN [Concomitant]
     Indication: PAIN

REACTIONS (1)
  - LUNG DISORDER [None]
